FAERS Safety Report 24187731 (Version 5)
Quarter: 2025Q3

REPORT INFORMATION
  Report Type: Spontaneous
  Country: CA (occurrence: CA)
  Receive Date: 20240808
  Receipt Date: 20250813
  Transmission Date: 20251021
  Serious: Yes (Hospitalization, Other)
  Sender: CELLTRION
  Company Number: CA-CELLTRION INC.-2023CA025711

PATIENT

DRUGS (20)
  1. TRUXIMA [Suspect]
     Active Substance: RITUXIMAB-ABBS
     Indication: Vasculitis
     Dosage: 700 MG, Q WEEKLY X 4 WEEKS
     Route: 042
     Dates: start: 20231214
  2. TRUXIMA [Suspect]
     Active Substance: RITUXIMAB-ABBS
     Dosage: 700 MG, INFUSION #2
     Route: 042
     Dates: start: 20231214
  3. TRUXIMA [Suspect]
     Active Substance: RITUXIMAB-ABBS
     Dosage: 700 MG, INFUSION #3
     Route: 042
     Dates: start: 20231214
  4. TRUXIMA [Suspect]
     Active Substance: RITUXIMAB-ABBS
     Route: 042
     Dates: start: 20231214
  5. TRUXIMA [Suspect]
     Active Substance: RITUXIMAB-ABBS
     Route: 042
     Dates: start: 20231214
  6. TRUXIMA [Suspect]
     Active Substance: RITUXIMAB-ABBS
     Route: 042
     Dates: start: 20231214
  7. TRUXIMA [Suspect]
     Active Substance: RITUXIMAB-ABBS
     Route: 042
     Dates: start: 20231214
  8. DIPHENHYDRAMINE HYDROCHLORIDE [Concomitant]
     Active Substance: DIPHENHYDRAMINE HYDROCHLORIDE
     Indication: Premedication
     Route: 048
  9. METHYLPREDNISOLONE [Concomitant]
     Active Substance: METHYLPREDNISOLONE
     Indication: Premedication
     Route: 042
  10. ACETAMINOPHEN [Concomitant]
     Active Substance: ACETAMINOPHEN
     Indication: Premedication
  11. ACETAMINOPHEN [Concomitant]
     Active Substance: ACETAMINOPHEN
  12. ACETAMINOPHEN [Concomitant]
     Active Substance: ACETAMINOPHEN
     Route: 048
  13. APIXABAN [Concomitant]
     Active Substance: APIXABAN
     Route: 048
  14. BISOPROLOL [Concomitant]
     Active Substance: BISOPROLOL
     Route: 048
  15. AMLODIPINE [Concomitant]
     Active Substance: AMLODIPINE BESYLATE
     Route: 048
  16. SULFATRIM [Concomitant]
     Active Substance: SULFAMETHOXAZOLE\TRIMETHOPRIM
     Route: 048
  17. PANTOPRAZOLE [Concomitant]
     Active Substance: PANTOPRAZOLE
     Route: 048
  18. RISEDRONATE SODIUM [Concomitant]
     Active Substance: RISEDRONATE SODIUM
     Dosage: 35 MG, WEEKLY
     Route: 048
  19. TYLENOL [Concomitant]
     Active Substance: ACETAMINOPHEN
     Indication: Arthritis
     Route: 048
  20. PREDNISONE [Concomitant]
     Active Substance: PREDNISONE
     Route: 048

REACTIONS (17)
  - Inner ear disorder [Unknown]
  - Vertigo [Unknown]
  - Cardiac failure congestive [Unknown]
  - Hypertension [Recovered/Resolved]
  - Dysstasia [Unknown]
  - Poor venous access [Unknown]
  - Feeling cold [Recovered/Resolved]
  - Nervousness [Recovered/Resolved]
  - Stress [Recovering/Resolving]
  - Pain in extremity [Unknown]
  - Fatigue [Unknown]
  - Headache [Recovered/Resolved]
  - Oedema peripheral [Recovering/Resolving]
  - Dizziness [Recovered/Resolved]
  - Diarrhoea [Unknown]
  - Intentional product use issue [Recovered/Resolved]
  - Off label use [Unknown]

NARRATIVE: CASE EVENT DATE: 20231201
